FAERS Safety Report 4697612-7 (Version None)
Quarter: 2005Q2

REPORT INFORMATION
  Report Type: 
  Country: None (occurrence: None)
  Receive Date: 20050620
  Receipt Date: 20050516
  Transmission Date: 20051028
  Serious: No
  Sender: FDA-Public Use
  Company Number: US-YAMANOUCHI-YPA20050266

PATIENT
  Age: 61 Year
  Sex: Female
  Weight: 67.586 kg

DRUGS (3)
  1. VESICARE [Suspect]
     Indication: CYSTITIS INTERSTITIAL
     Dosage: 5 MG QD PO
     Route: 048
     Dates: start: 20050512
  2. ACCUPRIL [Concomitant]
  3. USUAL INTERSTITIAL CYSTITIS MEDICATIONS [Concomitant]

REACTIONS (2)
  - DRUG INEFFECTIVE [None]
  - POSTMENOPAUSAL HAEMORRHAGE [None]
